FAERS Safety Report 5368022-4 (Version None)
Quarter: 2007Q2

REPORT INFORMATION
  Report Type: 
  Country: None (occurrence: None)
  Receive Date: 20070622
  Receipt Date: 20070611
  Transmission Date: 20071010
  Serious: Yes (Other)
  Sender: FDA-Public Use
  Company Number: US-PFIZER INC-2007048665

PATIENT
  Sex: Female
  Weight: 72.727 kg

DRUGS (5)
  1. CHANTIX [Suspect]
     Indication: SMOKING CESSATION THERAPY
  2. VICODIN [Concomitant]
     Indication: ARTHRALGIA
  3. ALL OTHER THERAPEUTIC PRODUCTS [Concomitant]
     Indication: THYROID DISORDER
  4. VALIUM [Concomitant]
     Indication: MUSCLE RELAXANT THERAPY
  5. NITROFURANTOIN [Concomitant]
     Indication: CYSTITIS

REACTIONS (3)
  - GAIT DISTURBANCE [None]
  - MUSCLE SPASMS [None]
  - PAIN [None]
